FAERS Safety Report 25610338 (Version 2)
Quarter: 2025Q3

REPORT INFORMATION
  Report Type: Spontaneous
  Country: US (occurrence: US)
  Receive Date: 20250728
  Receipt Date: 20250812
  Transmission Date: 20251021
  Serious: Yes (Hospitalization)
  Sender: BOSTON SCIENTIFIC
  Company Number: US-BSC-2025000082

PATIENT
  Age: 54 Year
  Sex: Male
  Weight: 149.69 kg

DRUGS (5)
  1. VARITHENA [Suspect]
     Active Substance: POLIDOCANOL
     Indication: Varicose vein
     Dates: start: 20250702, end: 20250702
  2. METOPROLOL [Concomitant]
     Active Substance: METOPROLOL
     Indication: Hypertension
  3. OMEPRAZOLE [Concomitant]
     Active Substance: OMEPRAZOLE
     Indication: Gastrooesophageal reflux disease
  4. MOUNJARO [Concomitant]
     Active Substance: TIRZEPATIDE
     Indication: Obesity
  5. ALBUTEROL [Concomitant]
     Active Substance: ALBUTEROL
     Indication: Asthma

REACTIONS (2)
  - Pulmonary embolism [Recovered/Resolved]
  - Wrong technique in product usage process [Unknown]

NARRATIVE: CASE EVENT DATE: 20250702
